FAERS Safety Report 10383233 (Version 2)
Quarter: 2014Q4

REPORT INFORMATION
  Report Type: Report from Study
  Country: FR (occurrence: FR)
  Receive Date: 20140814
  Receipt Date: 20141105
  Transmission Date: 20150528
  Serious: Yes (Other)
  Sender: FDA-Public Use
  Company Number: FR-AMGEN-FRACT2014060942

PATIENT
  Age: 65 Year
  Sex: Female
  Weight: 43 kg

DRUGS (8)
  1. ZOPHREN                            /00955301/ [Concomitant]
     Active Substance: ONDANSETRON
     Dosage: 8 MG, UNK
     Dates: start: 20121030, end: 20121030
  2. PANITUMUMAB [Suspect]
     Active Substance: PANITUMUMAB
     Indication: OESOPHAGEAL ADENOCARCINOMA
     Dosage: 230 MG, UNK
     Route: 042
     Dates: start: 20120605
  3. 5 FU [Concomitant]
     Active Substance: FLUOROURACIL
     Dosage: 3150 MG, UNK
     Route: 042
     Dates: start: 20120605
  4. EMEROL [Concomitant]
     Dosage: 125 MG, UNK
     Dates: start: 20121030, end: 20121030
  5. CALCIUM FOLINATE [Concomitant]
     Active Substance: LEUCOVORIN CALCIUM
     Indication: OESOPHAGEAL ADENOCARCINOMA
     Dosage: 250 MG, UNK
     Route: 042
     Dates: start: 20120605
  6. OXALIPLATIN. [Concomitant]
     Active Substance: OXALIPLATIN
     Indication: OESOPHAGEAL ADENOCARCINOMA
     Dosage: 0 MG, UNK
     Route: 042
     Dates: start: 20120605
  7. 5 FU [Concomitant]
     Active Substance: FLUOROURACIL
     Indication: OESOPHAGEAL ADENOCARCINOMA
     Dosage: 530 MG, UNK
     Route: 040
     Dates: start: 20120605
  8. SOLU-MEDROL [Concomitant]
     Active Substance: METHYLPREDNISOLONE SODIUM SUCCINATE
     Dosage: 60 MG, UNK
     Dates: start: 20121030, end: 20121030

REACTIONS (1)
  - Aspartate aminotransferase increased [Recovered/Resolved]

NARRATIVE: CASE EVENT DATE: 20121030
